FAERS Safety Report 24799360 (Version 1)
Quarter: 2025Q1

REPORT INFORMATION
  Report Type: Spontaneous
  Country: US (occurrence: US)
  Receive Date: 20250102
  Receipt Date: 20250102
  Transmission Date: 20250409
  Serious: Yes (Other)
  Sender: Steriscience PTE
  Company Number: US-STERISCIENCE B.V.-2024-ST-002204

PATIENT
  Age: 48 Year
  Sex: Female

DRUGS (2)
  1. SUMATRIPTAN SUCCINATE [Suspect]
     Active Substance: SUMATRIPTAN SUCCINATE
     Indication: Migraine
     Route: 065
  2. COBIMETINIB [Concomitant]
     Active Substance: COBIMETINIB
     Indication: Rosai-Dorfman syndrome
     Route: 065

REACTIONS (1)
  - Colitis ischaemic [Unknown]
